FAERS Safety Report 17543305 (Version 1)
Quarter: 2020Q1

REPORT INFORMATION
  Report Type: Spontaneous
  Country: US (occurrence: US)
  Receive Date: 20200306
  Receipt Date: 20200306
  Transmission Date: 20200409
  Serious: No
  Sender: FDA-Public Use
  Company Number: None

PATIENT
  Age: 55 Year
  Sex: Female

DRUGS (1)
  1. MAYZENT [Suspect]
     Active Substance: SIPONIMOD
     Route: 048
     Dates: start: 202002, end: 202002

REACTIONS (5)
  - Therapy cessation [None]
  - Headache [None]
  - Hot flush [None]
  - Paraesthesia [None]
  - Vaginal discharge [None]

NARRATIVE: CASE EVENT DATE: 20200306
